FAERS Safety Report 23506359 (Version 1)
Quarter: 2024Q1

REPORT INFORMATION
  Report Type: Report from Study
  Country: CO (occurrence: CO)
  Receive Date: 20240209
  Receipt Date: 20240209
  Transmission Date: 20240410
  Serious: Yes (Other)
  Sender: FDA-Public Use
  Company Number: CO-JNJFOC-20230834200

PATIENT
  Age: 38 Year
  Sex: Female
  Weight: 66 kg

DRUGS (1)
  1. SIMPONI [Suspect]
     Active Substance: GOLIMUMAB
     Indication: Ankylosing spondylitis
     Route: 058
     Dates: start: 20220721, end: 20230705

REACTIONS (7)
  - Cellulitis [Recovering/Resolving]
  - Urinary tract infection [Recovering/Resolving]
  - Abscess [Recovering/Resolving]
  - Influenza [Recovering/Resolving]
  - Pharyngitis [Recovering/Resolving]
  - Decreased immune responsiveness [Recovering/Resolving]
  - Skin disorder [Unknown]

NARRATIVE: CASE EVENT DATE: 20220101
